FAERS Safety Report 7766693-6 (Version None)
Quarter: 2011Q3

REPORT INFORMATION
  Report Type: 
  Country: None (occurrence: None)
  Receive Date: 20110916
  Receipt Date: 20110901
  Transmission Date: 20111222
  Serious: Yes (Hospitalization, Other)
  Sender: FDA-Public Use
  Company Number: DSU-2011-06538

PATIENT
  Age: 57 Year
  Sex: Female
  Weight: 96.6162 kg

DRUGS (7)
  1. JANUMET (METFORMIN HYDROCHLORIDE, SITAGLIPTIN PHOSPHATE) (METFORMIN HY [Concomitant]
  2. WELCHOL [Suspect]
     Indication: POST PROCEDURAL DIARRHOEA
     Dosage: 3750 MG (1250 MG, TID), PER ORAL
     Route: 048
  3. ROBAXIN (METHOCARBAMOL) (METHOCARBAMOL) [Concomitant]
  4. PHENERGAN (PROMETHAZINE) (PROMETHAZINE) [Concomitant]
  5. PLAVIX [Concomitant]
  6. ENDOCET (PARACETAMOL, OXYCODONE HYDROCHLORIDE) (PARACETAMOL, OXYCODONE [Concomitant]
  7. LANTUS SOLOSTAR (INSULIN GLARGINE) (INSULIN GLARGINE) [Concomitant]

REACTIONS (6)
  - CEREBROVASCULAR ACCIDENT [None]
  - CEREBRAL HAEMORRHAGE [None]
  - CONVULSION [None]
  - HEADACHE [None]
  - COMA [None]
  - PANIC ATTACK [None]
